FAERS Safety Report 24163477 (Version 2)
Quarter: 2024Q3

REPORT INFORMATION
  Report Type: Spontaneous
  Country: US (occurrence: US)
  Receive Date: 20240801
  Receipt Date: 20240821
  Transmission Date: 20241017
  Serious: Yes (Hospitalization, Other)
  Sender: MADRIGAL PHARMACEUTICALS
  Company Number: US-MADRIGAL PHARMACEUTICALS, INC-2024REZ0766

PATIENT

DRUGS (1)
  1. REZDIFFRA [Suspect]
     Active Substance: RESMETIROM
     Indication: Non-alcoholic steatohepatitis
     Dosage: 80 MILLIGRAM, QD
     Route: 048
     Dates: start: 202406, end: 20240715

REACTIONS (8)
  - Pancreatic carcinoma [Unknown]
  - Blood bilirubin increased [Not Recovered/Not Resolved]
  - Jaundice [Not Recovered/Not Resolved]
  - Hepatic lesion [Unknown]
  - Faeces pale [Not Recovered/Not Resolved]
  - Blood alkaline phosphatase increased [Unknown]
  - Aspartate aminotransferase increased [Unknown]
  - Alanine aminotransferase increased [Unknown]

NARRATIVE: CASE EVENT DATE: 20240701
